FAERS Safety Report 5799837-6 (Version None)
Quarter: 2008Q3

REPORT INFORMATION
  Report Type: 
  Country: None (occurrence: None)
  Receive Date: 20080702
  Receipt Date: 20080702
  Transmission Date: 20090109
  Serious: Yes (Other)
  Sender: FDA-Public Use
  Company Number: None

PATIENT
  Age: 72 Year
  Sex: Female
  Weight: 81.6475 kg

DRUGS (7)
  1. DIGITEK 0.125MG BERTEK [Suspect]
     Indication: CARDIAC FAILURE CONGESTIVE
     Dosage: ONE TBLET DAILY  HAS BEEN ON DIGITEK FOR A ^LONG TIME^
  2. ATENOLOL [Concomitant]
  3. VITAPLEX PLUS [Concomitant]
  4. ARTHRITIS MEDICATION [Concomitant]
  5. FUROSEMIDE [Concomitant]
  6. HUMULIN R [Concomitant]
  7. SPIRONOLACTONE/HYDROCHLOROTHIAZIDE [Concomitant]

REACTIONS (6)
  - DIZZINESS [None]
  - FEELING ABNORMAL [None]
  - HEART RATE INCREASED [None]
  - HEART RATE IRREGULAR [None]
  - MEMORY IMPAIRMENT [None]
  - VISION BLURRED [None]
